FAERS Safety Report 10047290 (Version 2)
Quarter: 2014Q1

REPORT INFORMATION
  Report Type: Spontaneous
  Country: US (occurrence: US)
  Receive Date: 20140331
  Receipt Date: 20140331
  Transmission Date: 20141002
  Serious: No
  Sender: FDA-Public Use
  Company Number: US-MYLANLABS-2013S1028021

PATIENT
  Sex: Female
  Weight: 77.11 kg

DRUGS (4)
  1. FENTANYL TRANSDERMAL SYSTEM [Suspect]
     Dosage: CHANGES Q. 72 HOURS
     Route: 062
     Dates: start: 2009
  2. NEURONTIN [Concomitant]
     Indication: NEURALGIA
     Route: 048
     Dates: start: 2009
  3. VALIUM [Concomitant]
     Indication: MUSCLE SPASMS
     Route: 048
     Dates: start: 2009
  4. PERCOCET [Concomitant]
     Indication: BREAKTHROUGH PAIN
     Route: 048
     Dates: start: 2009

REACTIONS (4)
  - Drug effect decreased [Not Recovered/Not Resolved]
  - Back pain [Not Recovered/Not Resolved]
  - Neuralgia [Not Recovered/Not Resolved]
  - Incorrect drug administration duration [Not Recovered/Not Resolved]
